FAERS Safety Report 7656664-2 (Version None)
Quarter: 2011Q3

REPORT INFORMATION
  Report Type: 
  Country: None (occurrence: None)
  Receive Date: 20110804
  Receipt Date: 20110728
  Transmission Date: 20111222
  Serious: Yes (Hospitalization)
  Sender: FDA-Public Use
  Company Number: NZ-ALEXION-A201100964

PATIENT
  Sex: Female

DRUGS (27)
  1. PREGABALIN [Suspect]
     Dosage: UNK
     Dates: start: 20100825, end: 20101221
  2. ENOXAPARIN SODIUM [Concomitant]
  3. CIPROFLAXACIN [Concomitant]
     Dosage: 500 MG, FOR TEMP }38.5, OR 38 FOR MORE THAN ONE HOUR
  4. SUMATRIPTAN SUCCINATE [Concomitant]
     Dosage: 50 MG, AS REQUIRED
  5. HYDROXOCOBALAMIN [Concomitant]
     Dosage: 1000 UG, QMONTH
     Route: 042
  6. GABAPENTIN [Concomitant]
     Dosage: 600 MG TID, 900 MG QHS, 600 MG PRN QHS
  7. METHADONE HYDROCHLORIDE [Concomitant]
     Dosage: 100 MG, BID
  8. METHADONE HYDROCHLORIDE [Concomitant]
     Dosage: 20 MG, PRN
  9. DOXYCYCLINE [Concomitant]
     Dosage: 100 MG, BID
  10. FENTANYL [Concomitant]
     Indication: ABDOMINAL PAIN
     Dosage: UNK
     Route: 042
     Dates: end: 20090602
  11. METHADONE HYDROCHLORIDE [Concomitant]
     Dosage: 65 MG, BID
     Dates: start: 20091006
  12. FLUCONAZOLE [Concomitant]
     Dosage: 400 MG, QD
     Route: 048
  13. ONDANSETRON [Concomitant]
     Indication: NAUSEA
     Dosage: UNK, PRN
  14. WARFARIN [Concomitant]
     Dosage: 3 MG, UNK
  15. METOCLOPRAMIDE [Concomitant]
     Indication: NAUSEA
     Dosage: UNK, PRN
  16. METHYLPREDNISOLONE [Concomitant]
     Dosage: UNK
     Dates: start: 20011101, end: 20101018
  17. CLONIDINE [Concomitant]
     Dosage: 30-60 MG, PRN
  18. PENICILLIN VK [Concomitant]
     Dosage: 500 MG, BID
  19. NORINYL 1+35 28-DAY [Concomitant]
     Dosage: 1, QD
  20. SOLIRIS [Suspect]
     Indication: PAROXYSMAL NOCTURNAL HAEMOGLOBINURIA
     Dosage: 900 MG, UNK
     Route: 042
     Dates: start: 20080814
  21. LIDOCAINE [Suspect]
     Dosage: UNK
     Route: 042
     Dates: start: 20090602, end: 20100513
  22. GABAPENTIN [Concomitant]
     Dosage: 600 MG, UNK
  23. FERROUS SULFATE TAB [Concomitant]
  24. COLOXYL WITH SENNA [Concomitant]
     Dosage: UNK, PRN
  25. METHADONE HYDROCHLORIDE [Concomitant]
     Dosage: 35 MG, BID
  26. GABAPENTIN [Concomitant]
     Dosage: 900 MG, QD
  27. FOLIC ACID [Concomitant]

REACTIONS (19)
  - RADIAL NERVE PALSY [None]
  - NEUTROPENIA [None]
  - STAPHYLOCOCCAL ABSCESS [None]
  - WOUND INFECTION STAPHYLOCOCCAL [None]
  - PANCYTOPENIA [None]
  - CHOLESTASIS [None]
  - PAIN [None]
  - BILIARY TRACT INFECTION [None]
  - GALLBLADDER OEDEMA [None]
  - ABDOMINAL PAIN [None]
  - INTENTIONAL DRUG MISUSE [None]
  - CHOLELITHIASIS [None]
  - STAPHYLOCOCCAL SEPSIS [None]
  - MALNUTRITION [None]
  - PNEUMONIA [None]
  - THROMBOCYTOPENIA [None]
  - INFECTIOUS PERITONITIS [None]
  - PROCEDURAL COMPLICATION [None]
  - INFLAMMATION [None]
